FAERS Safety Report 10190199 (Version 2)
Quarter: 2014Q2

REPORT INFORMATION
  Report Type: Spontaneous
  Country: BA (occurrence: BA)
  Receive Date: 20140522
  Receipt Date: 20140610
  Transmission Date: 20141212
  Serious: Yes (Death, Disabling)
  Sender: FDA-Public Use
  Company Number: BA-ELI_LILLY_AND_COMPANY-BA201405005145

PATIENT
  Age: 71 Year
  Sex: Female

DRUGS (1)
  1. ALIMTA [Suspect]
     Indication: PRODUCT USED FOR UNKNOWN INDICATION
     Dosage: 500 MG, UNKNOWN
     Route: 065

REACTIONS (6)
  - Death [Fatal]
  - Fibrin degradation products increased [Unknown]
  - Dyspnoea [Unknown]
  - Cough [Unknown]
  - Pneumonitis [Unknown]
  - Fatigue [Unknown]
